FAERS Safety Report 25352171 (Version 1)
Quarter: 2025Q2

REPORT INFORMATION
  Report Type: Spontaneous
  Country: BR (occurrence: BR)
  Receive Date: 20250523
  Receipt Date: 20250523
  Transmission Date: 20250717
  Serious: Yes (Life-Threatening, Hospitalization, Other)
  Sender: Steriscience PTE
  Company Number: BR-STERISCIENCE B.V.-2025-ST-000962

PATIENT
  Age: 44 Year
  Sex: Male

DRUGS (1)
  1. GANCICLOVIR SODIUM [Suspect]
     Active Substance: GANCICLOVIR SODIUM
     Indication: Cytomegalovirus viraemia
     Route: 065

REACTIONS (3)
  - Drug reaction with eosinophilia and systemic symptoms [None]
  - Eosinophilic myocarditis [None]
  - Off label use [Unknown]
